FAERS Safety Report 9120716 (Version 2)
Quarter: 2013Q2

REPORT INFORMATION
  Report Type: Report from Study
  Country: US (occurrence: US)
  Receive Date: 20130226
  Receipt Date: 20130523
  Transmission Date: 20140414
  Serious: Yes (Hospitalization)
  Sender: FDA-Public Use
  Company Number: US-ROCHE-1193345

PATIENT
  Sex: Female

DRUGS (3)
  1. ZELBORAF [Suspect]
     Indication: PRODUCT USED FOR UNKNOWN INDICATION
     Dosage: 8 TABLETS DAILY
     Route: 065
  2. ZELBORAF [Suspect]
     Route: 065
  3. YERVOY [Concomitant]

REACTIONS (3)
  - Urticaria [Recovered/Resolved]
  - Skin papilloma [Unknown]
  - Alopecia [Unknown]
